FAERS Safety Report 22042011 (Version 1)
Quarter: 2023Q1

REPORT INFORMATION
  Report Type: Report from Study
  Country: TR (occurrence: TR)
  Receive Date: 20230227
  Receipt Date: 20230227
  Transmission Date: 20230418
  Serious: Yes (Life-Threatening, Hospitalization)
  Sender: FDA-Public Use
  Company Number: TR-ABBVIE-21P-161-4205796-00

PATIENT
  Age: 72 Year
  Sex: Male

DRUGS (21)
  1. VENETOCLAX [Suspect]
     Active Substance: VENETOCLAX
     Indication: Myelodysplastic syndrome
     Dosage: DAYS 1 - 14 OF EACH 28-DAY CYCLE
     Route: 048
     Dates: start: 20210426, end: 20211219
  2. AZACITIDINE [Suspect]
     Active Substance: AZACITIDINE
     Indication: Myelodysplastic syndrome
     Dosage: 7 DAYS WITHIN THE FIRST 9 DAYS PER 28 DAY CYCLE
     Route: 058
     Dates: start: 20210426, end: 20211217
  3. VALTREX [Concomitant]
     Active Substance: VALACYCLOVIR HYDROCHLORIDE
     Indication: Infection prophylaxis
     Route: 048
     Dates: start: 20210426
  4. DIGOXIN [Concomitant]
     Active Substance: DIGOXIN
     Indication: Myocardial infarction
     Route: 048
     Dates: start: 20210410
  5. INSPRA [Concomitant]
     Active Substance: EPLERENONE
     Indication: Myocardial infarction
     Route: 048
     Dates: start: 20210410
  6. INSPRA [Concomitant]
     Active Substance: EPLERENONE
     Indication: Myocardial infarction
     Route: 048
     Dates: start: 20200801, end: 20200901
  7. INSPRA [Concomitant]
     Active Substance: EPLERENONE
     Indication: Myocardial infarction
     Route: 048
     Dates: start: 20211101
  8. KYTRIL [Concomitant]
     Active Substance: GRANISETRON HYDROCHLORIDE
     Indication: Premedication
     Dosage: TIME INTERVAL: AS NECESSARY
     Route: 042
     Dates: start: 20210426
  9. VORICONAZOLE [Concomitant]
     Active Substance: VORICONAZOLE
     Indication: Bronchopulmonary aspergillosis
     Route: 048
     Dates: start: 20211025
  10. HIRUDOID FORTE [Concomitant]
     Indication: Haemorrhage subcutaneous
     Dosage: TIME INTERVAL: AS NECESSARY
     Route: 061
     Dates: start: 20210820
  11. LENOGRASTIM [Concomitant]
     Active Substance: LENOGRASTIM
     Indication: Premedication
     Dosage: TIME INTERVAL: AS NECESSARY: 3/3 MG/ML
     Route: 042
     Dates: start: 20210910
  12. COSMETICS [Concomitant]
     Active Substance: COSMETICS
     Indication: Rash
     Route: 061
     Dates: start: 20210910
  13. COSMETICS [Concomitant]
     Active Substance: COSMETICS
     Indication: Rash
     Route: 061
     Dates: start: 20211125
  14. TRAMADOL [Concomitant]
     Active Substance: TRAMADOL
     Indication: Febrile neutropenia
     Route: 042
     Dates: start: 20211124
  15. FUARTE [Concomitant]
     Indication: Infection prophylaxis
     Route: 048
     Dates: start: 20211125
  16. NAPROSYN [Concomitant]
     Active Substance: NAPROXEN
     Indication: Muscle rupture
     Route: 061
     Dates: start: 20211129, end: 20211228
  17. CALBICOR [Concomitant]
     Indication: Myocardial infarction
     Route: 048
     Dates: start: 20211130
  18. ALFUZOSIN [Concomitant]
     Active Substance: ALFUZOSIN
     Indication: Urinary tract disorder
     Route: 048
     Dates: start: 20211206, end: 20211228
  19. PROCAIN [Concomitant]
     Indication: Febrile neutropenia
     Route: 042
     Dates: start: 20211217
  20. GERALGINE-K [Concomitant]
     Indication: Febrile neutropenia
     Route: 048
     Dates: start: 20211124
  21. LEVMONT TB [Concomitant]
     Indication: Antifungal prophylaxis
     Dosage: 5/10 MG
     Route: 048
     Dates: start: 20211125, end: 20211225

REACTIONS (2)
  - Escherichia sepsis [Recovered/Resolved]
  - Neutropenic sepsis [Recovered/Resolved]

NARRATIVE: CASE EVENT DATE: 20211219
